FAERS Safety Report 21734603 (Version 1)
Quarter: 2022Q4

REPORT INFORMATION
  Report Type: Spontaneous
  Country: US (occurrence: US)
  Receive Date: 20221215
  Receipt Date: 20221215
  Transmission Date: 20230112
  Serious: No
  Sender: FDA-Public Use
  Company Number: US-VIIV HEALTHCARE LIMITED-US2022AMR183487

PATIENT
  Age: 54 Year
  Sex: Female

DRUGS (2)
  1. RILPIVIRINE [Suspect]
     Active Substance: RILPIVIRINE
     Indication: HIV infection
     Dosage: UNK, Z, UNKNOWN DOSE ONCE PER MONTH
     Route: 065
     Dates: start: 202210
  2. CABOTEGRAVIR [Suspect]
     Active Substance: CABOTEGRAVIR
     Indication: HIV infection
     Dosage: UNK, Z, UNKNOWN DOSE ONCE PER MONTH
     Route: 065
     Dates: start: 202210

REACTIONS (3)
  - Malaise [Recovered/Resolved]
  - Somnolence [Recovering/Resolving]
  - Injection site nodule [Unknown]

NARRATIVE: CASE EVENT DATE: 20220101
